FAERS Safety Report 12638345 (Version 1)
Quarter: 2016Q3

REPORT INFORMATION
  Report Type: Spontaneous
  Country: US (occurrence: US)
  Receive Date: 20160809
  Receipt Date: 20160809
  Transmission Date: 20161109
  Serious: No
  Sender: FDA-Public Use
  Company Number: US-SA-2016SA103175

PATIENT
  Sex: Male

DRUGS (11)
  1. CLOPIDOGREL [Concomitant]
     Active Substance: CLOPIDOGREL BISULFATE
     Dosage: STRENGTH: 75 MG
  2. CALCIUM ACETATE. [Concomitant]
     Active Substance: CALCIUM ACETATE
  3. ISOSORBIDE MONONITRATE. [Concomitant]
     Active Substance: ISOSORBIDE MONONITRATE
  4. CARVEDILOL. [Concomitant]
     Active Substance: CARVEDILOL
     Dosage: STRENGTH: 6.25 MG
  5. RANEXA [Concomitant]
     Active Substance: RANOLAZINE
     Dosage: STRENGTH: 500 MG
  6. PRALUENT [Suspect]
     Active Substance: ALIROCUMAB
     Route: 065
  7. ALIROCUMAB PREFILLED PEN [Concomitant]
     Active Substance: ALIROCUMAB
  8. AMLODIPINE [Concomitant]
     Active Substance: AMLODIPINE BESYLATE
     Dosage: STRENGTH: 10 MG
  9. SENSIPAR [Concomitant]
     Active Substance: CINACALCET HYDROCHLORIDE
     Dosage: STRENGTH: 30 MG
  10. TRADJENTA [Concomitant]
     Active Substance: LINAGLIPTIN
     Dosage: STRENGTH: 5 MG
  11. ACETAMINOPHEN/TRAMADOL HYDROCHLORIDE [Concomitant]

REACTIONS (2)
  - Myalgia [Unknown]
  - Asthenia [Unknown]
